FAERS Safety Report 4363882-8 (Version None)
Quarter: 2004Q2

REPORT INFORMATION
  Report Type: 
  Country: None (occurrence: None)
  Receive Date: 20040520
  Receipt Date: 20040520
  Transmission Date: 20050107
  Serious: Yes (Hospitalization)
  Sender: FDA-Public Use
  Company Number: None

PATIENT
  Age: 52 Year
  Sex: Female
  Weight: 245.6 kg

DRUGS (22)
  1. GEMCITABINE [Suspect]
     Indication: METASTATIC CARCINOMA OF THE BLADDER
     Dosage: 1000 MG/M2
     Dates: start: 20040324
  2. GEMCITABINE [Suspect]
     Indication: METASTATIC CARCINOMA OF THE BLADDER
     Dosage: 1000 MG/M2
     Dates: start: 20040331
  3. GEMCITABINE [Suspect]
     Indication: METASTATIC CARCINOMA OF THE BLADDER
     Dosage: 1000 MG/M2
     Dates: start: 20040414
  4. GEMCITABINE [Suspect]
     Indication: METASTATIC CARCINOMA OF THE BLADDER
     Dosage: 1000 MG/M2
     Dates: start: 20040421
  5. GEMCITABINE [Suspect]
     Indication: METASTATIC CARCINOMA OF THE BLADDER
     Dosage: 1000 MG/M2
     Dates: start: 20040512
  6. CARBOPLATIN [Suspect]
     Indication: METASTATIC CARCINOMA OF THE BLADDER
     Dosage: AUC 5
     Dates: start: 20040324
  7. CARBOPLATIN [Suspect]
     Indication: METASTATIC CARCINOMA OF THE BLADDER
     Dosage: AUC 5
     Dates: start: 20040414
  8. CARBOPLATIN [Suspect]
     Indication: METASTATIC CARCINOMA OF THE BLADDER
     Dosage: AUC 5
     Dates: start: 20040512
  9. SYNTHROID [Concomitant]
  10. NORVASC [Concomitant]
  11. LISINOPRIL [Concomitant]
  12. TRICOR [Concomitant]
  13. ZANTAC 150 [Concomitant]
  14. M.V.I. [Concomitant]
  15. FERROUS SULFATE TAB [Concomitant]
  16. DECADRON [Concomitant]
  17. ATIVAN [Concomitant]
  18. OXYCONTIN [Concomitant]
  19. COUMADIN [Concomitant]
  20. OXYCODONE [Concomitant]
  21. DITROPAN [Concomitant]
  22. MACROBID [Concomitant]

REACTIONS (3)
  - ASTHENIA [None]
  - SEPSIS [None]
  - VOMITING [None]
